FAERS Safety Report 4510420-2 (Version None)
Quarter: 2004Q4

REPORT INFORMATION
  Report Type: 
  Country: None (occurrence: None)
  Receive Date: 20041122
  Receipt Date: 20041109
  Transmission Date: 20050328
  Serious: Yes (Hospitalization)
  Sender: FDA-Public Use
  Company Number: 199604

PATIENT
  Age: 68 Year
  Sex: Female

DRUGS (5)
  1. AVONEX [Suspect]
     Indication: MULTIPLE SCLEROSIS
     Dosage: 30 MCG QW IM
     Route: 030
     Dates: start: 20010701, end: 20040329
  2. AVONEX [Suspect]
     Indication: MULTIPLE SCLEROSIS
     Dosage: 30 MCG QW IM
     Route: 030
     Dates: start: 20040329
  3. VOLTAREN [Concomitant]
  4. TOPROL-XL [Concomitant]
  5. FOSAMAX [Concomitant]

REACTIONS (5)
  - ASTHENIA [None]
  - BRAIN OEDEMA [None]
  - FALL [None]
  - SKULL FRACTURE [None]
  - SUBDURAL HAEMATOMA [None]
